FAERS Safety Report 8116536-6 (Version None)
Quarter: 2012Q1

REPORT INFORMATION
  Report Type: 
  Country: None (occurrence: None)
  Receive Date: 20120206
  Receipt Date: 20120131
  Transmission Date: 20120608
  Serious: Yes (Death, Other)
  Sender: FDA-Public Use
  Company Number: JP-BRISTOL-MYERS SQUIBB COMPANY-16269946

PATIENT
  Age: 31 Year
  Sex: Male

DRUGS (7)
  1. STAVUDINE [Suspect]
     Indication: HIV INFECTION
     Dosage: ART THERAPY 14 YEARS INCLUDING INTERRUPTION PERIOD
     Route: 065
     Dates: start: 19960101
  2. LOPINAVIR [Suspect]
     Indication: HIV INFECTION
     Dosage: ART THERAPY 14 YEARS INCLUDING INTERRUPTION PERIOD
     Route: 065
     Dates: start: 19960101
  3. EFAVIRENZ [Suspect]
     Indication: HIV INFECTION
     Dosage: ART THERAPY 14 YEARS INCLUDING INTERRUPTION PERIOD
     Route: 048
     Dates: start: 19960101
  4. ATAZANAVIR [Suspect]
     Indication: HIV INFECTION
     Dosage: ART THERAPY 14 YEARS INCLUDING INTERRUPTION PERIOD
     Route: 065
     Dates: start: 19960101
  5. ISENTRESS [Suspect]
     Indication: HIV INFECTION
     Dosage: ART THERAPY 14 YEARS INCLUDING INTERRUPTION PERIOD,TABS
     Route: 048
     Dates: start: 19960101
  6. LAMIVUDINE [Suspect]
     Indication: HIV INFECTION
     Dosage: ART THERAPY 14 YEARS INCLUDING INTERRUPTION PERIOD
     Route: 065
     Dates: start: 19960101
  7. RITONAVIR [Suspect]
     Indication: HIV INFECTION
     Route: 065
     Dates: start: 19960101

REACTIONS (2)
  - AORTIC ANEURYSM RUPTURE [None]
  - ARTERIOSCLEROSIS [None]
